FAERS Safety Report 6095880-0 (Version None)
Quarter: 2009Q1

REPORT INFORMATION
  Report Type: 
  Country: None (occurrence: None)
  Receive Date: 20090227
  Receipt Date: 20080703
  Transmission Date: 20090719
  Serious: No
  Sender: FDA-Public Use
  Company Number: A0736042A

PATIENT
  Age: 49 Year
  Sex: Female

DRUGS (6)
  1. LAMICTAL [Suspect]
     Dosage: 200MG TWICE PER DAY
     Route: 048
     Dates: start: 20080201
  2. METOPROLOL [Concomitant]
  3. CLONIDINE [Concomitant]
  4. LASIX [Concomitant]
  5. HYDROCHLOROTHIAZIDE [Concomitant]
  6. KLONOPIN [Concomitant]

REACTIONS (3)
  - RASH [None]
  - SKIN EXFOLIATION [None]
  - SKIN ULCER [None]
